FAERS Safety Report 17500360 (Version 1)
Quarter: 2020Q1

REPORT INFORMATION
  Report Type: Spontaneous
  Country: US (occurrence: US)
  Receive Date: 20200224
  Receipt Date: 20200224
  Transmission Date: 20200409
  Serious: No
  Sender: FDA-Public Use
  Company Number: None

PATIENT
  Age: 34 Year
  Sex: Male
  Weight: 81.65 kg

DRUGS (1)
  1. CEPHALEXIN 500 MG CAP [Suspect]
     Active Substance: CEPHALEXIN
     Indication: SYCOSIS BARBAE
     Route: 048
     Dates: start: 20200222, end: 20200223

REACTIONS (1)
  - Rash [None]

NARRATIVE: CASE EVENT DATE: 20200224
